FAERS Safety Report 23127512 (Version 1)
Quarter: 2023Q4

REPORT INFORMATION
  Report Type: Spontaneous
  Country: US (occurrence: US)
  Receive Date: 20231031
  Receipt Date: 20231031
  Transmission Date: 20240109
  Serious: Yes (Other)
  Sender: FDA-Public Use
  Company Number: US-BAYER-2023A150235

PATIENT
  Sex: Female

DRUGS (2)
  1. ASTEPRO [Suspect]
     Active Substance: AZELASTINE HYDROCHLORIDE
     Dosage: 2 SPRAYS IN EACH NOSESTRILL
     Route: 045
     Dates: start: 20231019, end: 20231019
  2. AFRIN ALLERGY SINUS NASAL [Suspect]
     Active Substance: OXYMETAZOLINE HYDROCHLORIDE
     Route: 045

REACTIONS (3)
  - Drug dependence [Not Recovered/Not Resolved]
  - Dyspnoea [Not Recovered/Not Resolved]
  - Nasal obstruction [Not Recovered/Not Resolved]

NARRATIVE: CASE EVENT DATE: 20231019
